FAERS Safety Report 5700894-3 (Version None)
Quarter: 2008Q2

REPORT INFORMATION
  Report Type: 
  Country: None (occurrence: None)
  Receive Date: 20080410
  Receipt Date: 20080404
  Transmission Date: 20081010
  Serious: Yes (Other)
  Sender: FDA-Public Use
  Company Number: A0719385A

PATIENT
  Age: 10 Year
  Sex: Female

DRUGS (3)
  1. ADVAIR HFA [Suspect]
     Indication: ASTHMA
     Dosage: 1PUFF TWICE PER DAY
     Route: 055
  2. ADVAIR HFA [Suspect]
     Dosage: 2PUFF TWICE PER DAY
     Route: 055
     Dates: start: 20071101
  3. UNKNOWN MEDICATION [Concomitant]

REACTIONS (6)
  - ASTHMA [None]
  - CUSHINGOID [None]
  - EMOTIONAL DISTRESS [None]
  - INCREASED APPETITE [None]
  - KYPHOSIS [None]
  - WEIGHT INCREASED [None]
